FAERS Safety Report 19137832 (Version 1)
Quarter: 2021Q2

REPORT INFORMATION
  Report Type: Report from Study
  Country: None (occurrence: US)
  Receive Date: 20210415
  Receipt Date: 20210415
  Transmission Date: 20210717
  Serious: Yes (Hospitalization)
  Sender: FDA-Public Use
  Company Number: US-ABBVIE-21K-163-3852543-00

PATIENT
  Sex: Male

DRUGS (1)
  1. HUMIRA [Suspect]
     Active Substance: ADALIMUMAB
     Indication: CROHN^S DISEASE
     Dosage: DAY 1
     Route: 058
     Dates: start: 20210325, end: 20210325

REACTIONS (7)
  - Nausea [Unknown]
  - Crohn^s disease [Recovering/Resolving]
  - Loss of personal independence in daily activities [Unknown]
  - Pollakiuria [Unknown]
  - Colitis [Recovering/Resolving]
  - Appendicitis [Recovering/Resolving]
  - Insomnia [Unknown]

NARRATIVE: CASE EVENT DATE: 2021
